FAERS Safety Report 7211112-1 (Version None)
Quarter: 2011Q1

REPORT INFORMATION
  Report Type: 
  Country: None (occurrence: None)
  Receive Date: 20110105
  Receipt Date: 20101231
  Transmission Date: 20110831
  Serious: Yes (Death)
  Sender: FDA-Public Use
  Company Number: US-ASTRAZENECA-2011SE00265

PATIENT
  Age: 61 Year
  Sex: Female

DRUGS (7)
  1. SALICYLATE [Suspect]
     Route: 048
  2. PROCLORPERAZINE [Suspect]
     Route: 048
  3. ACETAMINOPHEN [Suspect]
     Route: 048
  4. ANDROGEL [Suspect]
     Route: 048
  5. LISINOPRIL [Suspect]
     Route: 048
  6. QUETIAPINE [Suspect]
     Route: 048
  7. MONTELUKAST [Suspect]
     Route: 048

REACTIONS (2)
  - COMPLETED SUICIDE [None]
  - TOXICITY TO VARIOUS AGENTS [None]
